FAERS Safety Report 13598087 (Version 3)
Quarter: 2017Q3

REPORT INFORMATION
  Report Type: Spontaneous
  Country: KR (occurrence: KR)
  Receive Date: 20170531
  Receipt Date: 20170802
  Transmission Date: 20171127
  Serious: Yes (Other)
  Sender: FDA-Public Use
  Company Number: KR-009507513-1705KOR014735

PATIENT
  Age: 53 Year
  Sex: Male
  Weight: 63.7 kg

DRUGS (65)
  1. EMEND (FOSAPREPITANT DIMEGLUMINE) [Suspect]
     Active Substance: FOSAPREPITANT DIMEGLUMINE
     Dosage: 150 MG, ONCE
     Route: 042
     Dates: start: 20170425, end: 20170425
  2. ANZATAX (PACLITAXEL) [Suspect]
     Active Substance: PACLITAXEL
     Dosage: 299 MG, ONCE
     Route: 042
     Dates: start: 20170222, end: 20170222
  3. ANZATAX (PACLITAXEL) [Suspect]
     Active Substance: PACLITAXEL
     Dosage: 301 MG, ONCE
     Route: 042
     Dates: start: 20170404, end: 20170404
  4. ANZATAX (PACLITAXEL) [Suspect]
     Active Substance: PACLITAXEL
     Dosage: 301 MG, ONCE
     Route: 042
     Dates: start: 20170425, end: 20170425
  5. DEXAMETHASONE SODIUM PHOSPHATE. [Concomitant]
     Active Substance: DEXAMETHASONE SODIUM PHOSPHATE
     Indication: PROPHYLAXIS OF NAUSEA AND VOMITING
     Dosage: 17 MG, BID
     Route: 042
     Dates: start: 20170110, end: 20170110
  6. SANCUSO [Concomitant]
     Active Substance: GRANISETRON
     Dosage: 1 DF, QD, STRENGTH 80.2X66.6 MM2
     Route: 062
     Dates: start: 20170221, end: 20170227
  7. SANCUSO [Concomitant]
     Active Substance: GRANISETRON
     Dosage: 1 DF, QD, STRENGTH 80.2X66.6 MM2
     Route: 062
     Dates: start: 20170403, end: 20170409
  8. CURAN [Concomitant]
     Active Substance: RANITIDINE HYDROCHLORIDE
     Dosage: 50 MG, ONCE
     Route: 042
     Dates: start: 20170425, end: 20170425
  9. LASIX [Concomitant]
     Active Substance: FUROSEMIDE
     Dosage: 20 MG, ONCE
     Route: 042
     Dates: start: 20170201, end: 20170201
  10. ANZATAX (PACLITAXEL) [Suspect]
     Active Substance: PACLITAXEL
     Indication: ADENOCARCINOMA GASTRIC
     Dosage: 299 MG, ONCE
     Route: 042
     Dates: start: 20170110, end: 20170110
  11. CISPLATIN. [Suspect]
     Active Substance: CISPLATIN
     Dosage: 102 MG, ONCE
     Route: 042
     Dates: start: 20170222, end: 20170222
  12. CHLORPHENIRAMINE MALEATE. [Concomitant]
     Active Substance: CHLORPHENIRAMINE MALEATE
     Dosage: 4 MG, BID
     Route: 042
     Dates: start: 20170201, end: 20170201
  13. CHLORPHENIRAMINE MALEATE. [Concomitant]
     Active Substance: CHLORPHENIRAMINE MALEATE
     Dosage: 4 MG, ONCE
     Route: 042
     Dates: start: 20170315, end: 20170315
  14. CURAN [Concomitant]
     Active Substance: RANITIDINE HYDROCHLORIDE
     Dosage: 50 MG, ONCE
     Route: 042
     Dates: start: 20170201, end: 20170201
  15. CURAN [Concomitant]
     Active Substance: RANITIDINE HYDROCHLORIDE
     Dosage: 150 MG, BID
     Route: 048
     Dates: start: 20170426, end: 20170428
  16. CISPLATIN. [Suspect]
     Active Substance: CISPLATIN
     Dosage: 103 MG, ONCE
     Route: 042
     Dates: start: 20170404, end: 20170404
  17. DEXAMETHASONE SODIUM PHOSPHATE. [Concomitant]
     Active Substance: DEXAMETHASONE SODIUM PHOSPHATE
     Dosage: 12 MG, ONCE
     Route: 042
     Dates: start: 20170404, end: 20170404
  18. DEXAMETHASONE. [Concomitant]
     Active Substance: DEXAMETHASONE
     Indication: PROPHYLAXIS OF NAUSEA AND VOMITING
     Dosage: 4 MG, BID
     Route: 048
     Dates: start: 20170111, end: 20170113
  19. SANCUSO [Concomitant]
     Active Substance: GRANISETRON
     Indication: PROPHYLAXIS OF NAUSEA AND VOMITING
     Dosage: 1 DF, QD, STRENGTH 80.2X66.6 MM2
     Route: 062
     Dates: start: 20170109, end: 20170115
  20. CHLORPHENIRAMINE MALEATE. [Concomitant]
     Active Substance: CHLORPHENIRAMINE MALEATE
     Dosage: 4 MG, ONCE
     Route: 042
     Dates: start: 20170404, end: 20170404
  21. LASIX [Concomitant]
     Active Substance: FUROSEMIDE
     Dosage: 20 MG, ONCE
     Route: 042
     Dates: start: 20170315, end: 20170315
  22. LASIX [Concomitant]
     Active Substance: FUROSEMIDE
     Dosage: 20 MG, ONCE
     Route: 042
     Dates: start: 20170404, end: 20170404
  23. EMEND (FOSAPREPITANT DIMEGLUMINE) [Suspect]
     Active Substance: FOSAPREPITANT DIMEGLUMINE
     Dosage: 150 MG, ONCE
     Route: 042
     Dates: start: 20170201, end: 20170201
  24. EMEND (FOSAPREPITANT DIMEGLUMINE) [Suspect]
     Active Substance: FOSAPREPITANT DIMEGLUMINE
     Dosage: 150 MG, ONCE
     Route: 042
     Dates: start: 20170222, end: 20170222
  25. ANZATAX (PACLITAXEL) [Suspect]
     Active Substance: PACLITAXEL
     Dosage: 299 MG, ONCE
     Route: 042
     Dates: start: 20170201, end: 20170201
  26. CISPLATIN. [Suspect]
     Active Substance: CISPLATIN
     Dosage: 101 MG, ONCE
     Route: 042
     Dates: start: 20170315, end: 20170315
  27. DEXAMETHASONE SODIUM PHOSPHATE. [Concomitant]
     Active Substance: DEXAMETHASONE SODIUM PHOSPHATE
     Dosage: 12 MG, ONCE
     Route: 042
     Dates: start: 20170425, end: 20170425
  28. DEXAMETHASONE. [Concomitant]
     Active Substance: DEXAMETHASONE
     Dosage: 4 MG, BID
     Route: 048
     Dates: start: 20170223, end: 20170225
  29. SANCUSO [Concomitant]
     Active Substance: GRANISETRON
     Dosage: 1 DF, QD, STRENGTH 80.2X66.6 MM2
     Route: 062
     Dates: start: 20170314, end: 20170320
  30. SANCUSO [Concomitant]
     Active Substance: GRANISETRON
     Dosage: 1 DF, QD, STRENGTH 80.2X66.6 MM2
     Route: 062
     Dates: start: 20170424, end: 20170430
  31. CHLORPHENIRAMINE MALEATE. [Concomitant]
     Active Substance: CHLORPHENIRAMINE MALEATE
     Indication: PROPHYLAXIS
     Dosage: 4 MG, ONCE
     Route: 042
     Dates: start: 20170110, end: 20170110
  32. LASIX [Concomitant]
     Active Substance: FUROSEMIDE
     Indication: PROPHYLAXIS
     Dosage: 20 MG, ONCE
     Route: 042
     Dates: start: 20170111, end: 20170111
  33. LASIX [Concomitant]
     Active Substance: FUROSEMIDE
     Dosage: 20 MG, ONCE
     Route: 042
     Dates: start: 20170222, end: 20170222
  34. LASIX [Concomitant]
     Active Substance: FUROSEMIDE
     Dosage: 20 MG, ONCE
     Route: 042
     Dates: start: 20170425, end: 20170425
  35. MYPOL [Concomitant]
     Indication: MYALGIA
     Dosage: 2 CAPSULES, TID
     Route: 048
     Dates: start: 20170223, end: 20170411
  36. TYLENOL EXTENDED RELIEF CAPLETS [Concomitant]
     Active Substance: ACETAMINOPHEN
     Indication: PAIN PROPHYLAXIS
     Dosage: 650 MG, TID
     Route: 048
     Dates: start: 20170111, end: 20170117
  37. DEXAMETHASONE SODIUM PHOSPHATE. [Concomitant]
     Active Substance: DEXAMETHASONE SODIUM PHOSPHATE
     Dosage: 12 MG, ONCE
     Route: 042
     Dates: start: 20170201, end: 20170201
  38. DEXAMETHASONE SODIUM PHOSPHATE. [Concomitant]
     Active Substance: DEXAMETHASONE SODIUM PHOSPHATE
     Dosage: 12 MG, ONCE
     Route: 042
     Dates: start: 20170222, end: 20170222
  39. CHLORPHENIRAMINE MALEATE. [Concomitant]
     Active Substance: CHLORPHENIRAMINE MALEATE
     Dosage: 4 MG, ONCE
     Route: 042
     Dates: start: 20170222, end: 20170222
  40. MYPOL [Concomitant]
     Dosage: 2 CAPSULES, TID
     Route: 048
     Dates: start: 20170424, end: 20170515
  41. EMEND (FOSAPREPITANT DIMEGLUMINE) [Suspect]
     Active Substance: FOSAPREPITANT DIMEGLUMINE
     Indication: PROPHYLAXIS OF NAUSEA AND VOMITING
     Dosage: 150 MG, ONCE
     Route: 042
     Dates: start: 20170111, end: 20170111
  42. EMEND (FOSAPREPITANT DIMEGLUMINE) [Suspect]
     Active Substance: FOSAPREPITANT DIMEGLUMINE
     Dosage: 150 MG, ONCE
     Route: 042
     Dates: start: 20170404, end: 20170404
  43. ANZATAX (PACLITAXEL) [Suspect]
     Active Substance: PACLITAXEL
     Dosage: 295 MG, ONCE
     Route: 042
     Dates: start: 20170315, end: 20170315
  44. DEXAMETHASONE. [Concomitant]
     Active Substance: DEXAMETHASONE
     Dosage: 4 MG, BID
     Route: 048
     Dates: start: 20170202, end: 20170204
  45. DEXAMETHASONE. [Concomitant]
     Active Substance: DEXAMETHASONE
     Dosage: 4 MG, BID
     Route: 048
     Dates: start: 20170426, end: 20170428
  46. SANCUSO [Concomitant]
     Active Substance: GRANISETRON
     Dosage: 1 DF, QD, STRENGTH 80.2X66.6 MM2
     Route: 062
     Dates: start: 20170131, end: 20170206
  47. CHLORPHENIRAMINE MALEATE. [Concomitant]
     Active Substance: CHLORPHENIRAMINE MALEATE
     Dosage: 4 MG, ONCE
     Route: 042
     Dates: start: 20170425, end: 20170425
  48. CURAN [Concomitant]
     Active Substance: RANITIDINE HYDROCHLORIDE
     Dosage: 50 MG, ONCE
     Route: 042
     Dates: start: 20170222, end: 20170222
  49. CURAN [Concomitant]
     Active Substance: RANITIDINE HYDROCHLORIDE
     Dosage: 50 MG, ONCE
     Route: 042
     Dates: start: 20170404, end: 20170404
  50. CURAN [Concomitant]
     Active Substance: RANITIDINE HYDROCHLORIDE
     Dosage: 150 MG, BID
     Route: 048
     Dates: start: 20170202, end: 20170204
  51. EMEND (FOSAPREPITANT DIMEGLUMINE) [Suspect]
     Active Substance: FOSAPREPITANT DIMEGLUMINE
     Dosage: 150 MG, ONCE
     Route: 042
     Dates: start: 20170315, end: 20170315
  52. CISPLATIN. [Suspect]
     Active Substance: CISPLATIN
     Indication: ADENOCARCINOMA GASTRIC
     Dosage: 102 MG, ONCE
     Route: 042
     Dates: start: 20170111, end: 20170111
  53. CISPLATIN. [Suspect]
     Active Substance: CISPLATIN
     Dosage: 102 MG, ONCE
     Route: 042
     Dates: start: 20170201, end: 20170201
  54. DEXAMETHASONE. [Concomitant]
     Active Substance: DEXAMETHASONE
     Dosage: 4 MG, BID
     Route: 048
     Dates: start: 20170405, end: 20170407
  55. CENTRUM SILVER ADVANCE (MINERALS (UNSPECIFIED) (+) VITAMINS (UNSPECIFI [Concomitant]
     Indication: VITAMIN SUPPLEMENTATION
     Dosage: 1 DF, QD
     Route: 048
     Dates: start: 20170109, end: 20170316
  56. CURAN [Concomitant]
     Active Substance: RANITIDINE HYDROCHLORIDE
     Indication: PROPHYLAXIS
     Dosage: 50 MG, ONCE
     Route: 042
     Dates: start: 20170110, end: 20170110
  57. CURAN [Concomitant]
     Active Substance: RANITIDINE HYDROCHLORIDE
     Indication: PROPHYLAXIS
     Dosage: 150 MG, BID
     Route: 048
     Dates: start: 20170111, end: 20170113
  58. CURAN [Concomitant]
     Active Substance: RANITIDINE HYDROCHLORIDE
     Dosage: 150 MG, BID
     Route: 048
     Dates: start: 20170316, end: 20170318
  59. CISPLATIN. [Suspect]
     Active Substance: CISPLATIN
     Dosage: 103 MG, ONCE
     Route: 042
     Dates: start: 20170425, end: 20170425
  60. DEXAMETHASONE SODIUM PHOSPHATE. [Concomitant]
     Active Substance: DEXAMETHASONE SODIUM PHOSPHATE
     Dosage: 12 MG, ONCE
     Route: 042
     Dates: start: 20170315, end: 20170315
  61. DEXAMETHASONE. [Concomitant]
     Active Substance: DEXAMETHASONE
     Dosage: 4 MG, BID
     Route: 048
     Dates: start: 20170316, end: 20170318
  62. CURAN [Concomitant]
     Active Substance: RANITIDINE HYDROCHLORIDE
     Dosage: 50 MG, ONCE
     Route: 042
     Dates: start: 20170315, end: 20170315
  63. CURAN [Concomitant]
     Active Substance: RANITIDINE HYDROCHLORIDE
     Dosage: 150 MG, BID
     Route: 048
     Dates: start: 20170223, end: 20170225
  64. CURAN [Concomitant]
     Active Substance: RANITIDINE HYDROCHLORIDE
     Dosage: 150 MG, BID
     Route: 048
     Dates: start: 20170405, end: 20170407
  65. TYLENOL EXTENDED RELIEF CAPLETS [Concomitant]
     Active Substance: ACETAMINOPHEN
     Dosage: 650 MG, TID
     Route: 048
     Dates: start: 20170202, end: 20170208

REACTIONS (6)
  - Pneumonia [Recovered/Resolved]
  - Diabetes mellitus [Recovered/Resolved]
  - Dyspepsia [Recovered/Resolved]
  - Bronchiolitis [Recovered/Resolved]
  - Productive cough [Recovered/Resolved]
  - Paraesthesia [Not Recovered/Not Resolved]

NARRATIVE: CASE EVENT DATE: 20170314
